FAERS Safety Report 14623078 (Version 3)
Quarter: 2018Q2

REPORT INFORMATION
  Report Type: Spontaneous
  Country: GB (occurrence: GB)
  Receive Date: 20180311
  Receipt Date: 20180423
  Transmission Date: 20180711
  Serious: Yes (Hospitalization)
  Sender: FDA-Public Use
  Company Number: PHHY2018GB038729

PATIENT
  Age: 53 Year
  Sex: Female
  Weight: 74 kg

DRUGS (17)
  1. ERELZI [Suspect]
     Active Substance: ETANERCEPT-SZZS
     Indication: RHEUMATOID ARTHRITIS
     Dosage: 25 MG, Q2W
     Route: 065
     Dates: end: 20180118
  2. AMOXICILLIN. [Concomitant]
     Active Substance: AMOXICILLIN
     Indication: PRODUCT USED FOR UNKNOWN INDICATION
     Dosage: 1 DF, TID
     Route: 065
     Dates: start: 20150324
  3. LEVOTHYROXINE SODIUM. [Concomitant]
     Active Substance: LEVOTHYROXINE SODIUM
     Dosage: 50 UG, QD
     Route: 065
     Dates: start: 20180125
  4. ALLEVYN AG [Concomitant]
     Indication: PRODUCT USED FOR UNKNOWN INDICATION
     Dosage: UNK UNK, PRN (5 DRESSING)
     Route: 065
     Dates: start: 20150505
  5. INFLUENZA [Concomitant]
     Active Substance: INFLUENZA VIRUS VACCINE
     Indication: PRODUCT USED FOR UNKNOWN INDICATION
     Dosage: 1 DF, UNK
     Route: 065
     Dates: start: 20161004
  6. DOVOBET [Concomitant]
     Active Substance: BETAMETHASONE\CALCIPOTRIENE
     Indication: PRODUCT USED FOR UNKNOWN INDICATION
     Dosage: 120 G, BID
     Route: 065
     Dates: start: 20171204
  7. BETAMETHASONE VALERATE. [Concomitant]
     Active Substance: BETAMETHASONE VALERATE
     Indication: PRODUCT USED FOR UNKNOWN INDICATION
     Dosage: 30 G, QD (ONCE/TWICE A DAY)
     Route: 065
     Dates: start: 20170213
  8. FLUTICASONE FUROATE [Concomitant]
     Active Substance: FLUTICASONE FUROATE
     Indication: PRODUCT USED FOR UNKNOWN INDICATION
     Dosage: 1X120 DOSE (ONE SPRAY USED IN EACH NOSTRIL ONCE A DAY)
     Route: 045
     Dates: start: 20170424
  9. IMUVAC [Concomitant]
     Active Substance: INFLUENZA A VIRUS A/CALIFORNIA/7/2009(H1N1)-LIKE ANTIGEN (PROPIOLACTONE INACTIVATED)
     Indication: PRODUCT USED FOR UNKNOWN INDICATION
     Dosage: 1 DF, UNK
     Route: 065
     Dates: start: 20141203
  10. PREDNISONE. [Concomitant]
     Active Substance: PREDNISONE
     Indication: PRODUCT USED FOR UNKNOWN INDICATION
     Dosage: 5 MG, QID (FOR 4 DAYS)
     Route: 065
     Dates: start: 20161004
  11. FLUCLOXACILLIN [Concomitant]
     Active Substance: FLUCLOXACILLIN
     Indication: PRODUCT USED FOR UNKNOWN INDICATION
     Dosage: 1 DF, QID (FOR SEVEN DAYS)
     Route: 065
     Dates: start: 20161128
  12. HYPROMELLOSE [Concomitant]
     Active Substance: HYPROMELLOSES
     Dosage: 10 ML, UNK (1 OR 2 DROPS IN EACH EYES)
     Route: 047
     Dates: start: 20170327
  13. DOXYCYCLIN [Concomitant]
     Active Substance: DOXYCYCLINE
     Indication: ROSACEA
     Dosage: 50 MG, QD
     Route: 065
     Dates: start: 20160517
  14. PHENOXYMETHYL PENICILLIN [Concomitant]
     Active Substance: PENICILLIN V
     Indication: PRODUCT USED FOR UNKNOWN INDICATION
     Dosage: 250 MG, QID
     Route: 065
     Dates: start: 20161205
  15. HYPROMELLOSE [Concomitant]
     Active Substance: HYPROMELLOSES
     Indication: DRY EYE
     Dosage: 0.4 ML, UNK (DIRECT IN AFFECTED EYE)
     Route: 047
     Dates: start: 20161212
  16. LEVOTHYROXINE SODIUM. [Concomitant]
     Active Substance: LEVOTHYROXINE SODIUM
     Indication: THYROID DISORDER
     Dosage: 25 UG, QD
     Route: 065
     Dates: start: 20180125
  17. OTOMIZE [Concomitant]
     Active Substance: DEXAMETHASONE\NEOMYCIN SULFATE
     Indication: PRODUCT USED FOR UNKNOWN INDICATION
     Dosage: 5 ML, TID (SPRAY USED IN LEFT EAR)
     Route: 065
     Dates: start: 20170502

REACTIONS (1)
  - Meningitis bacterial [Recovering/Resolving]

NARRATIVE: CASE EVENT DATE: 20180118
